FAERS Safety Report 24674804 (Version 1)
Quarter: 2024Q4

REPORT INFORMATION
  Report Type: Other
  Country: US (occurrence: US)
  Receive Date: 20241128
  Receipt Date: 20241128
  Transmission Date: 20250115
  Serious: Yes (Other)
  Sender: BIONPHARMA INC.
  Company Number: US-Bion-014399

PATIENT
  Sex: Female

DRUGS (4)
  1. AZITHROMYCIN [Suspect]
     Active Substance: AZITHROMYCIN
     Indication: Preterm premature rupture of membranes
     Route: 042
  2. AMPICILLIN [Concomitant]
     Active Substance: AMPICILLIN
     Indication: Preterm premature rupture of membranes
     Route: 042
  3. AMOXICILLIN [Concomitant]
     Active Substance: AMOXICILLIN
     Indication: Preterm premature rupture of membranes
  4. AZITHROMYCIN [Suspect]
     Active Substance: AZITHROMYCIN
     Indication: Preterm premature rupture of membranes
     Route: 048

REACTIONS (2)
  - Exposure during pregnancy [Unknown]
  - Foetal death [Unknown]
